FAERS Safety Report 19369728 (Version 1)
Quarter: 2021Q2

REPORT INFORMATION
  Report Type: Report from Study
  Country: ES (occurrence: ES)
  Receive Date: 20210603
  Receipt Date: 20210603
  Transmission Date: 20210717
  Serious: Yes (Other)
  Sender: FDA-Public Use
  Company Number: ES-EXELIXIS-XL18421040902

PATIENT
  Age: 58 Year
  Sex: Male
  Weight: 70.8 kg

DRUGS (7)
  1. MICARDIS [Concomitant]
     Active Substance: TELMISARTAN
  2. HEPARIN [Concomitant]
     Active Substance: HEPARIN SODIUM
  3. DAPAGLIFLOZIN. [Concomitant]
     Active Substance: DAPAGLIFLOZIN
  4. INSULIN [Concomitant]
     Active Substance: INSULIN NOS
  5. NIVOLUMAB [Suspect]
     Active Substance: NIVOLUMAB
     Indication: RENAL CELL CARCINOMA
     Dosage: 3 MG/KG, Q3WEEKS, 4 DOSES
     Route: 042
     Dates: start: 20210310
  6. IPILIMUMAB [Suspect]
     Active Substance: IPILIMUMAB
     Indication: RENAL CELL CARCINOMA
     Dosage: 1 MG/KG, Q3WEEKS, 4 DOSES
     Route: 042
     Dates: start: 20210310
  7. XL184 [Suspect]
     Active Substance: CABOZANTINIB
     Indication: RENAL CELL CARCINOMA
     Dosage: 40 MG, QD
     Route: 048
     Dates: start: 20210310, end: 20210527

REACTIONS (1)
  - Hyperthyroidism [Not Recovered/Not Resolved]

NARRATIVE: CASE EVENT DATE: 20210503
